FAERS Safety Report 9936864 (Version 1)
Quarter: 2014Q1

REPORT INFORMATION
  Report Type: Spontaneous
  Country: US (occurrence: None)
  Receive Date: 20140115
  Receipt Date: 20140115
  Transmission Date: 20141002
  Serious: Yes (Other)
  Sender: FDA-Public Use
  Company Number: DAV-AE-MTX-13-49

PATIENT
  Sex: 0

DRUGS (1)
  1. METHOTREXATE [Suspect]
     Dates: start: 201212

REACTIONS (1)
  - Herpes ophthalmic [None]
